FAERS Safety Report 11102986 (Version 1)
Quarter: 2015Q2

REPORT INFORMATION
  Report Type: Spontaneous
  Country: US (occurrence: None)
  Receive Date: 20150508
  Receipt Date: 20150508
  Transmission Date: 20150821
  Serious: Yes (Hospitalization)
  Sender: FDA-Public Use
  Company Number: None

PATIENT
  Age: 32 Year
  Sex: Female
  Weight: 68.04 kg

DRUGS (1)
  1. CISPLATIN. [Suspect]
     Active Substance: CISPLATIN
     Dates: end: 20150420

REACTIONS (11)
  - Hypophagia [None]
  - Hyponatraemia [None]
  - Flat affect [None]
  - Decreased appetite [None]
  - Starvation [None]
  - Drug abuse [None]
  - Electrolyte imbalance [None]
  - Dehydration [None]
  - Trichomoniasis [None]
  - Weight decreased [None]
  - Nausea [None]

NARRATIVE: CASE EVENT DATE: 20150423
